FAERS Safety Report 12211843 (Version 1)
Quarter: 2016Q1

REPORT INFORMATION
  Report Type: Spontaneous
  Country: FR (occurrence: FR)
  Receive Date: 20160325
  Receipt Date: 20160325
  Transmission Date: 20160526
  Serious: Yes (Other)
  Sender: FDA-Public Use
  Company Number: FR-JNJFOC-20160322025

PATIENT
  Age: 78 Year
  Sex: Male

DRUGS (7)
  1. ACTISKENAN [Concomitant]
     Active Substance: MORPHINE SULFATE
     Route: 065
     Dates: start: 20160127
  2. XARELTO [Suspect]
     Active Substance: RIVAROXABAN
     Indication: THROMBOSIS PROPHYLAXIS
     Route: 048
     Dates: start: 20160128, end: 20160201
  3. DOLIPRANE [Concomitant]
     Active Substance: ACETAMINOPHEN
     Route: 048
     Dates: start: 20160127
  4. EXACYL [Suspect]
     Active Substance: TRANEXAMIC ACID
     Indication: PRODUCT USED FOR UNKNOWN INDICATION
     Route: 048
     Dates: start: 20160127, end: 20160127
  5. TRAMADOL HYDROCHLORIDE. [Concomitant]
     Active Substance: TRAMADOL HYDROCHLORIDE
     Route: 065
     Dates: start: 20160128
  6. LOVENOX [Concomitant]
     Active Substance: ENOXAPARIN SODIUM
     Indication: THROMBOSIS PROPHYLAXIS
     Route: 058
     Dates: start: 20160127, end: 20160127
  7. OMEPRAZOLE. [Concomitant]
     Active Substance: OMEPRAZOLE
     Route: 065

REACTIONS (1)
  - Deep vein thrombosis [Recovered/Resolved]

NARRATIVE: CASE EVENT DATE: 20160202
